FAERS Safety Report 8827454 (Version 1)
Quarter: 2012Q4

REPORT INFORMATION
  Report Type: 
  Country: US (occurrence: US)
  Receive Date: 20121005
  Receipt Date: 20121005
  Transmission Date: 20130627
  Serious: No
  Sender: FDA-Public Use
  Company Number: US-BRISTOL-MYERS SQUIBB COMPANY-16827818

PATIENT
  Age: 73 Year
  Sex: Female

DRUGS (1)
  1. AVAPRO [Suspect]

REACTIONS (6)
  - Nervous system disorder [Unknown]
  - Muscle disorder [Unknown]
  - Dyspnoea [Unknown]
  - Fatigue [Unknown]
  - Burning sensation [Unknown]
  - Headache [Unknown]
